FAERS Safety Report 8804870 (Version 1)
Quarter: 2012Q4

REPORT INFORMATION
  Report Type: 
  Country: US (occurrence: US)
  Receive Date: 20120924
  Receipt Date: 20120924
  Transmission Date: 20130627
  Serious: Yes (Other)
  Sender: FDA-Public Use
  Company Number: US-UCBSA-059325

PATIENT
  Age: 29 Year
  Sex: Female

DRUGS (1)
  1. CIMZIA [Suspect]
     Indication: CROHN^S DISEASE
     Dates: start: 200907

REACTIONS (3)
  - Caesarean section [Recovered/Resolved]
  - Pregnancy [Recovered/Resolved]
  - Fatigue [Not Recovered/Not Resolved]
